FAERS Safety Report 8171131-8 (Version None)
Quarter: 2012Q1

REPORT INFORMATION
  Report Type: 
  Country: None (occurrence: None)
  Receive Date: 20120228
  Receipt Date: 20120218
  Transmission Date: 20120608
  Serious: Yes (Hospitalization)
  Sender: FDA-Public Use
  Company Number: US-PFIZER INC-2012013401

PATIENT
  Age: 74 Year
  Sex: Male
  Weight: 76.2 kg

DRUGS (10)
  1. GLUCOSAMINE [Concomitant]
     Dosage: 500 MG, 1X/DAY
     Route: 048
     Dates: start: 20010101
  2. HYDROCODONE [Concomitant]
     Dosage: 5 MG, AS NEEDED
     Route: 048
     Dates: start: 20111201
  3. MIRALAX [Concomitant]
     Dosage: 8.5 G, 1X/DAY
     Route: 048
     Dates: start: 20110601, end: 20120114
  4. ACETAMINOPHEN [Concomitant]
     Dosage: 650 MG, AS NEEDED
     Route: 048
     Dates: start: 20110601
  5. AXITINIB [Suspect]
     Indication: SQUAMOUS CELL CARCINOMA
     Dosage: 5 MG, 2X/DAY
     Route: 048
     Dates: start: 20120104, end: 20120109
  6. LORAZEPAM [Concomitant]
     Dosage: 1 MG, AS NEEDED
     Route: 048
     Dates: start: 20111101
  7. COMPAZINE [Concomitant]
     Dosage: 10 MG, AS NEEDED
     Dates: start: 20110601
  8. AMBIEN [Concomitant]
     Dosage: 10 MG, NIGHTLY
     Route: 048
     Dates: start: 20110101
  9. AXITINIB [Suspect]
     Dosage: 3 MG, 2X/DAY
     Route: 048
     Dates: start: 20120112, end: 20120114
  10. NYSTATIN [Concomitant]
     Dosage: 5 ML, 4X/DAY
     Route: 048
     Dates: start: 20120104

REACTIONS (5)
  - FALL [None]
  - URINARY TRACT INFECTION [None]
  - DEHYDRATION [None]
  - DYSPHAGIA [None]
  - ASTHENIA [None]
